FAERS Safety Report 24726914 (Version 1)
Quarter: 2024Q4

REPORT INFORMATION
  Report Type: Spontaneous
  Country: US (occurrence: None)
  Receive Date: 20241211
  Receipt Date: 20241211
  Transmission Date: 20250115
  Serious: Yes (Hospitalization)
  Sender: Public
  Company Number: None

PATIENT
  Sex: Male
  Weight: 69.85 kg

DRUGS (2)
  1. WINREVAIR [Suspect]
     Active Substance: SOTATERCEPT-CSRK
     Indication: Pulmonary arterial hypertension
     Dosage: FREQUENCY : ONCE;?
     Route: 058
     Dates: start: 202412
  2. ORENITRAM [Suspect]
     Active Substance: TREPROSTINIL

REACTIONS (8)
  - Migraine [None]
  - Fall [None]
  - Confusional state [None]
  - Head injury [None]
  - Therapy interrupted [None]
  - Pulmonary arterial hypertension [None]
  - Pulmonary hypertension [None]
  - Mental status changes [None]
